FAERS Safety Report 16702515 (Version 1)
Quarter: 2019Q3

REPORT INFORMATION
  Report Type: Spontaneous
  Country: US (occurrence: US)
  Receive Date: 20190628
  Receipt Date: 20190628
  Transmission Date: 20191004
  Serious: No
  Sender: FDA-Public Use
  Company Number: None

PATIENT
  Age: 32 Year
  Sex: Female

DRUGS (2)
  1. TAQDALAFIL [Concomitant]
  2. AMBRISENTAN TAB 10MG [Suspect]
     Active Substance: AMBRISENTAN
     Route: 048
     Dates: start: 201904

REACTIONS (3)
  - Headache [None]
  - Rhinorrhoea [None]
  - Nausea [None]

NARRATIVE: CASE EVENT DATE: 20190628
